FAERS Safety Report 7762632-2 (Version None)
Quarter: 2011Q3

REPORT INFORMATION
  Report Type: 
  Country: None (occurrence: None)
  Receive Date: 20110920
  Receipt Date: 20110914
  Transmission Date: 20111222
  Serious: Yes (Hospitalization)
  Sender: FDA-Public Use
  Company Number: JP-GLAXOSMITHKLINE-B0747916A

PATIENT
  Sex: Male

DRUGS (4)
  1. ARASENA-A [Concomitant]
     Indication: HERPES ZOSTER
     Route: 042
     Dates: start: 20110909
  2. FAMOTIDINE [Concomitant]
     Indication: DUODENAL ULCER
     Dosage: 40MG PER DAY
     Route: 048
     Dates: start: 20110909
  3. VALTREX [Suspect]
     Indication: HERPES ZOSTER
     Dosage: 3000MG PER DAY
     Route: 048
     Dates: start: 20110909
  4. NORVASC [Concomitant]
     Indication: HYPERTENSION
     Dosage: 5MG PER DAY
     Route: 048
     Dates: start: 20110909

REACTIONS (1)
  - ALTERED STATE OF CONSCIOUSNESS [None]
